FAERS Safety Report 17217077 (Version 1)
Quarter: 2019Q4

REPORT INFORMATION
  Report Type: Spontaneous
  Country: US (occurrence: US)
  Receive Date: 20191231
  Receipt Date: 20191231
  Transmission Date: 20200122
  Serious: No
  Sender: FDA-Public Use
  Company Number: US-LUPIN PHARMACEUTICALS INC.-2019-07966

PATIENT
  Age: 76 Year
  Sex: Female

DRUGS (4)
  1. DOXYCYCLINE HYCLATE. [Suspect]
     Active Substance: DOXYCYCLINE HYCLATE
     Indication: FOLLICULITIS
     Dosage: 100 MILLIGRAM, QD
     Route: 048
  2. NETARSUDIL. [Concomitant]
     Active Substance: NETARSUDIL
     Indication: OPEN ANGLE GLAUCOMA
     Dosage: UNK
     Route: 047
  3. ROSUVASTATIN. [Concomitant]
     Active Substance: ROSUVASTATIN
     Indication: PRODUCT USED FOR UNKNOWN INDICATION
     Dosage: UNK
     Route: 065
  4. METOPROLOL. [Concomitant]
     Active Substance: METOPROLOL
     Indication: PRODUCT USED FOR UNKNOWN INDICATION
     Dosage: UNK
     Route: 065

REACTIONS (2)
  - Conjunctival cyst [Unknown]
  - Conjunctival pigmentation [None]
